FAERS Safety Report 20007068 (Version 8)
Quarter: 2023Q1

REPORT INFORMATION
  Report Type: Report from Study
  Country: US (occurrence: US)
  Receive Date: 20211028
  Receipt Date: 20230329
  Transmission Date: 20230417
  Serious: Yes (Other)
  Sender: FDA-Public Use
  Company Number: US-SHIRE-US202004683

PATIENT
  Age: 53 Year
  Sex: Female
  Weight: 49.887 kg

DRUGS (33)
  1. HUMAN IMMUNOGLOBULIN G [Suspect]
     Active Substance: HUMAN IMMUNOGLOBULIN G
     Indication: Primary immunodeficiency syndrome
     Dosage: 5 GRAM, 1/WEEK
     Route: 065
  2. HUMAN IMMUNOGLOBULIN G [Suspect]
     Active Substance: HUMAN IMMUNOGLOBULIN G
     Indication: Immunodeficiency
     Dosage: 5 GRAM, 1/WEEK
     Route: 058
  3. COVID-19 VACCINE NOS [Suspect]
     Active Substance: COVID-19 VACCINE NOS
     Indication: Product used for unknown indication
     Dosage: UNK
     Route: 065
     Dates: start: 20220930
  4. DIPHENHYDRAMINE [Concomitant]
     Active Substance: DIPHENHYDRAMINE
  5. XANAX [Concomitant]
     Active Substance: ALPRAZOLAM
  6. ONDANSETRON HCL [Concomitant]
     Active Substance: ONDANSETRON HYDROCHLORIDE
  7. MIGRANAL [Concomitant]
     Active Substance: DIHYDROERGOTAMINE MESYLATE
  8. HYDROCODONE BITARTRATE AND ACETAMINOPHEN [Concomitant]
     Active Substance: ACETAMINOPHEN\HYDROCODONE BITARTRATE
  9. HYOSCYAMINE SULFATE [Concomitant]
     Active Substance: HYOSCYAMINE SULFATE
  10. EPINEPHRINE [Concomitant]
     Active Substance: EPINEPHRINE
  11. SIMVASTATIN [Concomitant]
     Active Substance: SIMVASTATIN
  12. ADDERALL [Concomitant]
     Active Substance: AMPHETAMINE ASPARTATE\AMPHETAMINE SULFATE\DEXTROAMPHETAMINE SACCHARATE\DEXTROAMPHETAMINE SULFATE
  13. ALLEGRA ALLERGY [Concomitant]
     Active Substance: FEXOFENADINE HYDROCHLORIDE
  14. VITAMIN D3 [Concomitant]
     Active Substance: CHOLECALCIFEROL
  15. SUDAFED [Concomitant]
     Active Substance: PSEUDOEPHEDRINE HYDROCHLORIDE
  16. LIDOCAINE\PRILOCAINE [Concomitant]
     Active Substance: LIDOCAINE\PRILOCAINE
  17. BUPROPION HYDROCHLORIDE [Concomitant]
     Active Substance: BUPROPION HYDROCHLORIDE
  18. MELATONIN [Concomitant]
     Active Substance: MELATONIN
  19. BOTOX [Concomitant]
     Active Substance: ONABOTULINUMTOXINA
  20. VYEPTI [Concomitant]
     Active Substance: EPTINEZUMAB-JJMR
  21. CALCIUM [Concomitant]
     Active Substance: CALCIUM
  22. TROKENDI XR [Concomitant]
     Active Substance: TOPIRAMATE
  23. CELEBREX [Concomitant]
     Active Substance: CELECOXIB
  24. PROVERA [Concomitant]
     Active Substance: MEDROXYPROGESTERONE ACETATE
  25. AMBIEN [Concomitant]
     Active Substance: ZOLPIDEM TARTRATE
  26. PANTOPRAZOLE SODIUM [Concomitant]
     Active Substance: PANTOPRAZOLE SODIUM
  27. VITAMIN B [Concomitant]
     Active Substance: VITAMIN B
  28. RELPAX [Concomitant]
     Active Substance: ELETRIPTAN HYDROBROMIDE
  29. LEVALBUTEROL TARTRATE [Concomitant]
     Active Substance: LEVALBUTEROL TARTRATE
  30. PEPCID AC [Concomitant]
     Active Substance: FAMOTIDINE
  31. ACETAMINOPHEN [Concomitant]
     Active Substance: ACETAMINOPHEN
  32. BENEFIBER [Concomitant]
     Active Substance: STARCH, WHEAT
  33. PFIZER-BIONTECH COVID-19 VACCINE [Concomitant]
     Active Substance: TOZINAMERAN

REACTIONS (15)
  - Pseudomonas infection [Unknown]
  - Bronchiectasis [Unknown]
  - Gastrointestinal disorder [Unknown]
  - Infection [Unknown]
  - Fatigue [Unknown]
  - Vaccination complication [Unknown]
  - Migraine [Unknown]
  - Hypersensitivity [Unknown]
  - Infusion site pain [Unknown]
  - Influenza like illness [Recovered/Resolved]
  - Headache [Unknown]
  - COVID-19 [Unknown]
  - Inability to afford medication [Unknown]
  - Needle issue [Unknown]
  - Inappropriate schedule of product administration [Unknown]

NARRATIVE: CASE EVENT DATE: 20200204
